FAERS Safety Report 9095066 (Version 1)
Quarter: 2013Q1

REPORT INFORMATION
  Report Type: Spontaneous
  Country: US (occurrence: None)
  Receive Date: 20130214
  Receipt Date: 20130214
  Transmission Date: 20140127
  Serious: No
  Sender: FDA-Public Use
  Company Number: None

PATIENT
  Age: 83 Year
  Sex: Male
  Weight: 63.5 kg

DRUGS (1)
  1. PRADAXA 75 MG BOEHRINGER INGELHEIM [Suspect]
     Indication: ATRIAL FIBRILLATION
     Dosage: 1 CAPSULE EVERY 12 HRS
     Dates: start: 20121212

REACTIONS (2)
  - Drug hypersensitivity [None]
  - Urticaria [None]
